FAERS Safety Report 20956626 (Version 3)
Quarter: 2022Q3

REPORT INFORMATION
  Report Type: Spontaneous
  Country: US (occurrence: US)
  Receive Date: 20220614
  Receipt Date: 20220930
  Transmission Date: 20221026
  Serious: No
  Sender: FDA-Public Use
  Company Number: US-BRISTOL-MYERS SQUIBB COMPANY-2022-045710

PATIENT
  Age: 61 Year
  Sex: Female

DRUGS (3)
  1. POMALYST [Suspect]
     Active Substance: POMALIDOMIDE
     Indication: Plasma cell myeloma
     Route: 048
  2. POMALYST [Suspect]
     Active Substance: POMALIDOMIDE
     Dosage: DAILY
     Route: 048
     Dates: start: 20210410
  3. POMALYST [Suspect]
     Active Substance: POMALIDOMIDE
     Dosage: ON AN EMPTY STOMACH. DO NOT BREAK, CHEW OR OPEN CAPSULE
     Route: 048
     Dates: start: 20210110

REACTIONS (1)
  - Product dose omission issue [Unknown]
